FAERS Safety Report 5223716-6 (Version None)
Quarter: 2007Q1

REPORT INFORMATION
  Report Type: 
  Country: None (occurrence: None)
  Receive Date: 20070126
  Receipt Date: 20070112
  Transmission Date: 20070707
  Serious: Yes (Other)
  Sender: FDA-Public Use
  Company Number: 2006S1006216

PATIENT
  Age: 15 Year
  Sex: Male

DRUGS (10)
  1. MERCAPTAMINE BITARTRATE (MERCAPTAMINE BITARTRATE ) (150 MG) [Suspect]
     Indication: CYSTINOSIS
     Dosage: 54 + 61 + 54 MG/KG;DAILY; ORAL
     Route: 048
     Dates: end: 20060501
  2. MERCAPTAMINE BITARTRATE (MERCAPTAMINE BITARTRATE ) (150 MG) [Suspect]
     Indication: CYSTINOSIS
     Dosage: 54 + 61 + 54 MG/KG;DAILY; ORAL
     Route: 048
     Dates: start: 20060501, end: 20060701
  3. MERCAPTAMINE BITARTRATE (MERCAPTAMINE BITARTRATE ) (150 MG) [Suspect]
     Indication: CYSTINOSIS
     Dosage: 54 + 61 + 54 MG/KG;DAILY; ORAL
     Route: 048
     Dates: start: 19990101
  4. MERCAPTAMINE BITARTRATE (MERCAPTAMINE BITARTRATE ) (150 MG) [Suspect]
     Indication: CYSTINOSIS
     Dosage: 54 + 61 + 54 MG/KG;DAILY; ORAL
     Route: 048
     Dates: start: 20060701
  5. ALFACALCIDOL (CON.) [Concomitant]
  6. SOMATROPIN (CON.) [Concomitant]
  7. FERRIC FUMARATE (CON.) [Concomitant]
  8. POTASSIUM BICARBONATE (CON.) [Concomitant]
  9. SODIUM POTASSIUM PHOSPHATE (CON.) [Concomitant]
  10. L-CARNITHINE (CON.) [Concomitant]

REACTIONS (2)
  - SKIN LESION [None]
  - SKIN STRIAE [None]
